FAERS Safety Report 16920396 (Version 1)
Quarter: 2019Q4

REPORT INFORMATION
  Report Type: Spontaneous
  Country: US (occurrence: US)
  Receive Date: 20190822
  Receipt Date: 20190822
  Transmission Date: 20200122
  Serious: Yes (Hospitalization)
  Sender: FDA-Public Use
  Company Number: None

PATIENT
  Age: 65 Year
  Sex: Female
  Weight: 59 kg

DRUGS (2)
  1. GEMCITABINE HYDROCHLORIDE. [Suspect]
     Active Substance: GEMCITABINE HYDROCHLORIDE
     Dates: end: 20190730
  2. CISPLATIN. [Suspect]
     Active Substance: CISPLATIN
     Dates: end: 20190730

REACTIONS (6)
  - Diarrhoea [None]
  - Anal incontinence [None]
  - Asthenia [None]
  - Dehydration [None]
  - Platelet transfusion [None]
  - Pancytopenia [None]

NARRATIVE: CASE EVENT DATE: 20190805
